FAERS Safety Report 8495194-5 (Version None)
Quarter: 2012Q2

REPORT INFORMATION
  Report Type: 
  Country: None (occurrence: None)
  Receive Date: 20120628
  Receipt Date: 20120615
  Transmission Date: 20120825
  Serious: Yes (Hospitalization, Other)
  Sender: FDA-Public Use
  Company Number: 2012PI037477

PATIENT
  Age: 48 Year
  Sex: Female

DRUGS (18)
  1. SYNTHROID [Concomitant]
  2. PANTOPRAZOLE [Concomitant]
  3. NYSTATIN [Concomitant]
  4. METOPROLOL TARTRATE [Concomitant]
  5. INSULIN GLARGINE [Concomitant]
  6. PAROXETINE [Concomitant]
  7. OXYCODONE HCL [Concomitant]
  8. FOLIC ACID [Concomitant]
  9. MAGNESIUM OXIDE [Concomitant]
  10. CALCITRIOL [Concomitant]
  11. LORAZEPAM [Concomitant]
  12. METHYLPREDNISOLONE 4MG TAB [Suspect]
     Indication: RENAL TRANSPLANT
     Dosage: QD;PO
     Route: 048
  13. SODIUM CHLORIDE NASAL SPRAY [Concomitant]
  14. VITAMIN B COMPLEX CAP [Concomitant]
  15. UNSPECIFIED STEROID (NO PREF. NAME) [Suspect]
  16. ALLOPURINOL [Concomitant]
  17. ASCORBIC ACID [Concomitant]
  18. GABAPENTIN [Concomitant]

REACTIONS (20)
  - HAEMODIALYSIS [None]
  - CHOLECYSTECTOMY [None]
  - PULMONARY EMBOLISM [None]
  - CYSTITIS [None]
  - KIDNEY TRANSPLANT REJECTION [None]
  - SEPTIC SHOCK [None]
  - FUNGAL TEST POSITIVE [None]
  - SHOCK [None]
  - RENAL CYST [None]
  - GASTROENTERITIS VIRAL [None]
  - BLADDER DISORDER [None]
  - ADRENAL INSUFFICIENCY [None]
  - TACHYCARDIA [None]
  - CULTURE POSITIVE [None]
  - SPLEEN DISORDER [None]
  - PERITONITIS [None]
  - BACTERIAL TEST POSITIVE [None]
  - COELIAC ARTERY STENOSIS [None]
  - FOREIGN BODY [None]
  - ABSCESS INTESTINAL [None]
